FAERS Safety Report 14763896 (Version 1)
Quarter: 2018Q2

REPORT INFORMATION
  Report Type: Report from Study
  Country: PE (occurrence: PE)
  Receive Date: 20180416
  Receipt Date: 20180416
  Transmission Date: 20180711
  Serious: Yes (Hospitalization)
  Sender: FDA-Public Use
  Company Number: PE-EMD SERONO-E2B_90037335

PATIENT
  Age: 3 Year
  Sex: Female

DRUGS (1)
  1. SAIZEN [Suspect]
     Active Substance: SOMATROPIN
     Indication: TURNER^S SYNDROME
     Route: 058
     Dates: start: 20170420

REACTIONS (4)
  - Tonsillar disorder [Unknown]
  - Ear disorder [Unknown]
  - Adenoidal disorder [Unknown]
  - Procedural pain [Unknown]

NARRATIVE: CASE EVENT DATE: 201803
